FAERS Safety Report 5163304-3 (Version None)
Quarter: 2006Q4

REPORT INFORMATION
  Report Type: 
  Country: None (occurrence: None)
  Receive Date: 20061121
  Receipt Date: 20061109
  Transmission Date: 20070319
  Serious: Yes (Other)
  Sender: FDA-Public Use
  Company Number: 2006138151

PATIENT
  Sex: Male

DRUGS (1)
  1. BENADRYL [Suspect]
     Indication: ARTHROPOD BITE
     Dosage: ONCE, ORAL
     Route: 048

REACTIONS (2)
  - DYSPNOEA [None]
  - URTICARIA GENERALISED [None]
